FAERS Safety Report 14373482 (Version 1)
Quarter: 2018Q1

REPORT INFORMATION
  Report Type: Spontaneous
  Country: US (occurrence: US)
  Receive Date: 20180110
  Receipt Date: 20180110
  Transmission Date: 20180509
  Serious: No
  Sender: FDA-Public Use
  Company Number: US-MATRIXX INITIATIVES, INC.-2039857

PATIENT
  Age: 55 Year
  Sex: Female
  Weight: 65.91 kg

DRUGS (1)
  1. ZICAM COLD REMEDY NASAL SWABS (HOMEOPATHICS) [Suspect]
     Active Substance: HOMEOPATHICS\ZINC ACETATE\ZINC GLUCONATE
     Indication: NASAL CONGESTION
     Route: 045

REACTIONS (3)
  - Anosmia [None]
  - Ageusia [None]
  - Decreased appetite [None]
